FAERS Safety Report 14877692 (Version 1)
Quarter: 2018Q2

REPORT INFORMATION
  Report Type: Spontaneous
  Country: KR (occurrence: KR)
  Receive Date: 20180510
  Receipt Date: 20180510
  Transmission Date: 20180711
  Serious: Yes (Other)
  Sender: FDA-Public Use
  Company Number: KR-SA-2018SA127190

PATIENT
  Sex: Female

DRUGS (1)
  1. LEVOCETIRIZINE [Suspect]
     Active Substance: LEVOCETIRIZINE
     Route: 048
     Dates: end: 201803

REACTIONS (2)
  - Diabetes mellitus [Recovered/Resolved]
  - Hepatic enzyme increased [Recovered/Resolved]
